FAERS Safety Report 16650322 (Version 1)
Quarter: 2019Q3

REPORT INFORMATION
  Report Type: Spontaneous
  Country: DK (occurrence: DK)
  Receive Date: 20190731
  Receipt Date: 20190731
  Transmission Date: 20191004
  Serious: Yes (Hospitalization)
  Sender: FDA-Public Use
  Company Number: DK-TEVA-2019-DK-1085886

PATIENT
  Age: 87 Year
  Sex: Female

DRUGS (15)
  1. GABARATIO [Suspect]
     Active Substance: GABAPENTIN
     Indication: PAIN
     Dosage: STRENGTH: 300 MG.?900 MG PER DAY
     Route: 048
     Dates: start: 20190202
  2. BRILIQUE [Concomitant]
     Active Substance: TICAGRELOR
     Indication: INTRACARDIAC THROMBUS
     Dosage: STRENGTH: 90 MG.?180 MG PER DAY
     Route: 048
     Dates: start: 20190417
  3. PANTOPRAZOLE [Concomitant]
     Active Substance: PANTOPRAZOLE
     Indication: GASTRIC ULCER
     Dosage: STRENGTH: 40 MG.?40 MG PER DAY
     Route: 048
     Dates: start: 20190203
  4. PARACETAMOL [Concomitant]
     Active Substance: ACETAMINOPHEN
     Indication: PAIN
     Dosage: STRENGTH: 500 MG. DOSE: 2 TABLETS PN., NOT MORE THAN 4 TIMES A DAY.
     Route: 048
     Dates: start: 20160126
  5. ATORVASTATIN [Concomitant]
     Active Substance: ATORVASTATIN
     Indication: CARDIOVASCULAR EVENT PROPHYLAXIS
     Dosage: STRENTH: 40 MG.?40 MG PER DAY
     Route: 048
     Dates: start: 20190203
  6. QUININE [Concomitant]
     Active Substance: QUININE
     Indication: MUSCLE SPASMS
     Dosage: STRENGTH: 100 MG.?100 MG PER DAY
     Route: 048
     Dates: start: 20140227
  7. CETIRIZINE [Concomitant]
     Active Substance: CETIRIZINE HYDROCHLORIDE
     Indication: URTICARIA
     Dosage: STRENGTH: 10 MG.?10 MG PER DAY
     Route: 048
     Dates: start: 20160212, end: 20190203
  8. BISACODYL. [Concomitant]
     Active Substance: BISACODYL
     Indication: CONSTIPATION
     Dosage: STRENGTH: 5 MG?10 MG
     Route: 048
     Dates: start: 20160201
  9. AMLODIPIN ^ACCORD^ [Concomitant]
     Indication: CARDIAC DISORDER
     Dosage: STRENGTH: 5 MG.?5 MG PER DAY
     Route: 048
     Dates: start: 20190203
  10. FENTANYL. [Concomitant]
     Active Substance: FENTANYL
     Indication: PAIN
     Dosage: STRENGTH: 25 MICROGRAMS/HOUR.?1 DOSAGE FORMS PER 3 DAYS
     Route: 062
     Dates: start: 20140519
  11. MORPHINE [Concomitant]
     Active Substance: MORPHINE
     Indication: PAIN
     Dosage: STRENGTH: 10 MG. DOSE: 1 TABLET PN., NOT MORE THAN 6 TIMES A DAY
     Route: 048
     Dates: start: 20190703
  12. METOPROLOL. [Concomitant]
     Active Substance: METOPROLOL
     Indication: CARDIAC DISORDER
     Dosage: STRENGTH: 25 MG.?25 MG PER DAY
     Route: 048
     Dates: start: 20190202
  13. SPIRONOLACTONE. [Concomitant]
     Active Substance: SPIRONOLACTONE
     Indication: OEDEMA
     Dosage: STRENGTH: 25 MG.?25 MG PER DAY
     Route: 048
     Dates: start: 20190420
  14. FUROSEMIDE. [Concomitant]
     Active Substance: FUROSEMIDE
     Indication: DIURETIC THERAPY
     Dosage: STRENGTH: 40 MG.?40 MG PER DAY
     Route: 048
     Dates: start: 20190703
  15. CLOPIDOGREL [Concomitant]
     Active Substance: CLOPIDOGREL BISULFATE
     Indication: THROMBOSIS PROPHYLAXIS
     Dosage: STRENGTH: 75 MG.?75 MG PER DAY
     Route: 048
     Dates: start: 20190202

REACTIONS (2)
  - Myoclonus [Unknown]
  - Movement disorder [Unknown]

NARRATIVE: CASE EVENT DATE: 201906
